FAERS Safety Report 20580786 (Version 1)
Quarter: 2022Q1

REPORT INFORMATION
  Report Type: Spontaneous
  Country: US (occurrence: None)
  Receive Date: 20220311
  Receipt Date: 20220311
  Transmission Date: 20220423
  Serious: Yes (Death, Life-Threatening, Other)
  Sender: FDA-Public Use
  Company Number: US-BAYER-2020-245918

PATIENT
  Age: 29 Year
  Sex: Male

DRUGS (9)
  1. ALPRAZOLAM [Interacting]
     Active Substance: ALPRAZOLAM
     Indication: Product used for unknown indication
     Dosage: UNKNOWN
     Route: 065
  2. FENTANYL [Interacting]
     Active Substance: FENTANYL
     Indication: Product used for unknown indication
     Dosage: UNKNOWN
     Route: 065
  3. ETIZOLAM [Interacting]
     Active Substance: ETIZOLAM
     Indication: Product used for unknown indication
     Dosage: UNKNOWN
     Route: 065
  4. NORDAZEPAM [Interacting]
     Active Substance: NORDAZEPAM
     Indication: Product used for unknown indication
     Dosage: UNKNOWN
     Route: 065
  5. CHLORDIAZEPOXIDE [Interacting]
     Active Substance: CHLORDIAZEPOXIDE
     Indication: Product used for unknown indication
     Dosage: UNKNOWN
     Route: 065
  6. BENAZEPRIL [Concomitant]
     Active Substance: BENAZEPRIL HYDROCHLORIDE
     Indication: Product used for unknown indication
     Dosage: UNKNOWN
     Route: 065
  7. DOXYLAMINE [Concomitant]
     Active Substance: DOXYLAMINE
     Indication: Product used for unknown indication
     Dosage: UNKNOWN
     Route: 065
  8. MIRTAZAPINE [Concomitant]
     Active Substance: MIRTAZAPINE
     Indication: Product used for unknown indication
     Dosage: UNKNOWN
     Route: 065
  9. HYDROXYZINE [Concomitant]
     Active Substance: HYDROXYZINE HYDROCHLORIDE
     Indication: Product used for unknown indication
     Dosage: UNKNOWN
     Route: 065

REACTIONS (5)
  - Toxicity to various agents [Fatal]
  - Respiratory depression [Fatal]
  - Alcohol interaction [Fatal]
  - Pulmonary oedema [Fatal]
  - Drug interaction [Fatal]

NARRATIVE: CASE EVENT DATE: 20180101
